FAERS Safety Report 14271152 (Version 14)
Quarter: 2023Q1

REPORT INFORMATION
  Report Type: Spontaneous
  Country: GB (occurrence: GB)
  Receive Date: 20171211
  Receipt Date: 20230224
  Transmission Date: 20230417
  Serious: Yes (Death, Hospitalization, Other)
  Sender: FDA-Public Use
  Company Number: GB-BAXTER-2017BAX028147

PATIENT
  Age: 79 Year
  Sex: Female
  Weight: 79 kg

DRUGS (21)
  1. RAMIPRIL [Suspect]
     Active Substance: RAMIPRIL
     Dosage: 2.5 MG, UNK
     Route: 048
     Dates: start: 20140711
  2. FUROSEMIDE [Suspect]
     Active Substance: FUROSEMIDE
     Dosage: 80 MG, UNK
     Route: 048
     Dates: start: 20170403
  3. ENOXAPARIN SODIUM [Suspect]
     Active Substance: ENOXAPARIN SODIUM
     Dosage: 20 MG, UNK (ON HEMODIALYSIS)
     Route: 042
     Dates: start: 20170317
  4. LINAGLIPTIN [Suspect]
     Active Substance: LINAGLIPTIN
     Dosage: 5 MG, UNK
     Route: 048
     Dates: start: 20170403
  5. FOLIC ACID [Suspect]
     Active Substance: FOLIC ACID
     Dosage: 5 MG, UNK
     Route: 048
     Dates: start: 20170324
  6. ICODEXTRIN [Suspect]
     Active Substance: ICODEXTRIN
     Indication: Peritoneal dialysis
     Dosage: 2 L,UNK
     Route: 033
     Dates: start: 20170330, end: 20170712
  7. ALFACALCIDOL [Suspect]
     Active Substance: ALFACALCIDOL
     Dosage: 0.25 UG, UNK
     Route: 048
     Dates: start: 20161213
  8. APIDRA [Suspect]
     Active Substance: INSULIN GLULISINE
     Dosage: 12 IU, 3X/DAY (TID)
     Route: 058
     Dates: start: 20170403
  9. APIDRA [Suspect]
     Active Substance: INSULIN GLULISINE
     Dosage: 36 IU
     Route: 058
     Dates: start: 20170403
  10. DIANEAL [Suspect]
     Active Substance: CALCIUM CHLORIDE\DEXTROSE\MAGNESIUM CHLORIDE\SODIUM CHLORIDE\SODIUM LACTATE
     Indication: Peritoneal dialysis
     Dosage: 5 L, QD, DOSAGE TEXT :SOLUTION
     Route: 033
     Dates: start: 20170330, end: 20170712
  11. DIANEAL [Suspect]
     Active Substance: CALCIUM CHLORIDE\DEXTROSE\MAGNESIUM CHLORIDE\SODIUM CHLORIDE\SODIUM LACTATE
     Dosage: 10 L,UNK
     Route: 033
     Dates: start: 20170330, end: 20170712
  12. LEVEMIR [Suspect]
     Active Substance: INSULIN DETEMIR
     Dosage: 10 IU, UNK
     Route: 058
     Dates: start: 20170403
  13. ADALAT CC [Suspect]
     Active Substance: NIFEDIPINE
     Dosage: 60 MG, UNK
     Route: 048
     Dates: start: 20091027
  14. EPREX [Suspect]
     Active Substance: ERYTHROPOIETIN
     Indication: Anaemia
     Dosage: 3000 IU, QW
     Route: 058
     Dates: start: 20170628
  15. ENGERIX-B [Suspect]
     Active Substance: HEPATITIS B VIRUS SUBTYPE ADW2 HBSAG SURFACE PROTEIN ANTIGEN
     Dosage: 40 UG, UNK
     Route: 030
     Dates: start: 20161003, end: 20161003
  16. SODIUM BICARBONATE [Suspect]
     Active Substance: SODIUM BICARBONATE
     Dosage: 1 G,QD
     Route: 048
     Dates: start: 20170403
  17. DIANEAL [Suspect]
     Active Substance: CALCIUM CHLORIDE\DEXTROSE\MAGNESIUM CHLORIDE\SODIUM CHLORIDE\SODIUM LACTATE
     Indication: Peritoneal dialysis
     Dosage: 5 L, 1X/DAY (SOLUTION)
     Route: 033
     Dates: start: 20170330, end: 20170712
  18. DIANEAL [Suspect]
     Active Substance: CALCIUM CHLORIDE\DEXTROSE\MAGNESIUM CHLORIDE\SODIUM CHLORIDE\SODIUM LACTATE
     Dosage: 10 L, 1X/DAY
     Route: 033
     Dates: start: 20170330, end: 20170712
  19. EXTRANEAL [Suspect]
     Active Substance: CALCIUM CHLORIDE\ICODEXTRIN\MAGNESIUM CHLORIDE\SODIUM CHLORIDE\SODIUM LACTATE
     Indication: Peritoneal dialysis
     Dosage: 2 L,UNK DOSAGE FORM: SOLUTION
     Route: 033
     Dates: start: 20170330, end: 20170712
  20. EPOETIN DELTA [Suspect]
     Active Substance: EPOETIN DELTA
     Indication: Anaemia
     Dosage: 3000 IU,QW
     Route: 058
     Dates: start: 20170628
  21. VENOFER [Concomitant]
     Active Substance: IRON SUCROSE
     Dosage: 100 MG, WEEKLY
     Route: 042
     Dates: start: 20170324

REACTIONS (1)
  - Cerebrovascular accident [Fatal]

NARRATIVE: CASE EVENT DATE: 20170712
